FAERS Safety Report 16631942 (Version 1)
Quarter: 2019Q3

REPORT INFORMATION
  Report Type: Report from Study
  Country: US (occurrence: US)
  Receive Date: 20190725
  Receipt Date: 20190725
  Transmission Date: 20191004
  Serious: No
  Sender: FDA-Public Use
  Company Number: US-KYOWAKIRIN-2019BKK011719

PATIENT

DRUGS (1)
  1. CRYSVITA [Suspect]
     Active Substance: BUROSUMAB-TWZA
     Indication: HYPOPHOSPHATAEMIA
     Dosage: 10 MG, EVERY 2 WEEKS
     Route: 065
     Dates: start: 20181101

REACTIONS (1)
  - Injection site pruritus [Unknown]

NARRATIVE: CASE EVENT DATE: 20190717
